FAERS Safety Report 19203672 (Version 1)
Quarter: 2021Q2

REPORT INFORMATION
  Report Type: Spontaneous
  Country: CA (occurrence: CA)
  Receive Date: 20210430
  Receipt Date: 20210430
  Transmission Date: 20210717
  Serious: Yes (Death)
  Sender: FDA-Public Use
  Company Number: CA-TEVA-2021-CA-1908360

PATIENT
  Age: 39 Year
  Sex: Male

DRUGS (3)
  1. PREGABALIN. [Suspect]
     Active Substance: PREGABALIN
     Indication: ANXIETY
     Route: 048
  2. CLOZAPINE. [Concomitant]
     Active Substance: CLOZAPINE
  3. DESMOPRESSIN [Concomitant]
     Active Substance: DESMOPRESSIN

REACTIONS (1)
  - Intentional overdose [Fatal]
